FAERS Safety Report 18931319 (Version 1)
Quarter: 2021Q1

REPORT INFORMATION
  Report Type: Report from Study
  Country: US (occurrence: US)
  Receive Date: 20210223
  Receipt Date: 20210223
  Transmission Date: 20210420
  Serious: Yes (Other)
  Sender: FDA-Public Use
  Company Number: US-JAZZ-2020-US-015500

PATIENT
  Age: 54 Year
  Sex: Female

DRUGS (20)
  1. DICYCLOMINE [Concomitant]
     Active Substance: DICYCLOMINE HYDROCHLORIDE
  2. MYRBETRIQ [Concomitant]
     Active Substance: MIRABEGRON
  3. PROAIR RESPICLICK [Concomitant]
     Active Substance: ALBUTEROL SULFATE
  4. XYREM [Suspect]
     Active Substance: SODIUM OXYBATE
     Dosage: 3 GRAM, BID
     Route: 048
     Dates: start: 2020
  5. LORATADINE. [Concomitant]
     Active Substance: LORATADINE
  6. FAMOTIDINE. [Concomitant]
     Active Substance: FAMOTIDINE
  7. ALPRAZOLAM. [Concomitant]
     Active Substance: ALPRAZOLAM
  8. XYREM [Suspect]
     Active Substance: SODIUM OXYBATE
     Indication: NARCOLEPSY
     Dosage: 2.25 GRAM, BID
     Route: 048
     Dates: start: 20201114, end: 2020
  9. COLESTIPOL HCL [Concomitant]
     Active Substance: COLESTIPOL HYDROCHLORIDE
  10. ZYRTEC [Concomitant]
     Active Substance: CETIRIZINE HYDROCHLORIDE
  11. MODAFINIL. [Concomitant]
     Active Substance: MODAFINIL
  12. XIFAXAN [Concomitant]
     Active Substance: RIFAXIMIN
  13. CELEBREX [Concomitant]
     Active Substance: CELECOXIB
  14. HUMIRA [Concomitant]
     Active Substance: ADALIMUMAB
  15. OXCARBAZEPINE. [Concomitant]
     Active Substance: OXCARBAZEPINE
  16. SUCRALFATE. [Concomitant]
     Active Substance: SUCRALFATE
  17. TAGAMET [Concomitant]
     Active Substance: CIMETIDINE
  18. BENAZEPRIL HCL [Concomitant]
     Active Substance: BENAZEPRIL HYDROCHLORIDE
  19. PANTOPRAZOLE SODIUM. [Concomitant]
     Active Substance: PANTOPRAZOLE SODIUM
  20. VITAMIN D3 [Concomitant]
     Active Substance: CHOLECALCIFEROL

REACTIONS (8)
  - Abdominal pain upper [Unknown]
  - Dry mouth [Not Recovered/Not Resolved]
  - Dizziness [Not Recovered/Not Resolved]
  - Weight decreased [Not Recovered/Not Resolved]
  - Dysgeusia [Unknown]
  - Neuroma [Not Recovered/Not Resolved]
  - Diarrhoea [Unknown]
  - Memory impairment [Not Recovered/Not Resolved]

NARRATIVE: CASE EVENT DATE: 2020
